FAERS Safety Report 9019539 (Version 1)
Quarter: 2013Q1

REPORT INFORMATION
  Report Type: Report from Study
  Country: CA (occurrence: CA)
  Receive Date: 20130118
  Receipt Date: 20130118
  Transmission Date: 20140127
  Serious: Yes (Hospitalization)
  Sender: FDA-Public Use
  Company Number: CA-JNJFOC-20130106196

PATIENT
  Age: 22 None
  Sex: Male
  Weight: 66 kg

DRUGS (6)
  1. REMICADE [Suspect]
     Indication: INFLAMMATORY BOWEL DISEASE
     Dosage: INDUCTION PHASE
     Route: 042
     Dates: start: 20121221
  2. REMICADE [Suspect]
     Indication: INFLAMMATORY BOWEL DISEASE
     Route: 042
     Dates: start: 20130108
  3. PREDNISONE [Concomitant]
     Route: 065
  4. SALOFALK [Concomitant]
     Route: 065
  5. FLAGYL [Concomitant]
     Route: 065
  6. TYLENOL PLAIN [Concomitant]
     Route: 065

REACTIONS (3)
  - Heart rate increased [Not Recovered/Not Resolved]
  - Haemoglobin abnormal [Not Recovered/Not Resolved]
  - Cyanosis [Not Recovered/Not Resolved]
